FAERS Safety Report 16426223 (Version 1)
Quarter: 2019Q2

REPORT INFORMATION
  Report Type: Report from Study
  Country: ES (occurrence: ES)
  Receive Date: 20190613
  Receipt Date: 20190613
  Transmission Date: 20190711
  Serious: Yes (Hospitalization)
  Sender: FDA-Public Use
  Company Number: ES-JNJFOC-20190616708

PATIENT
  Age: 95 Year
  Sex: Male

DRUGS (5)
  1. HIDROFEROL [Concomitant]
     Active Substance: CALCIFEDIOL
     Route: 048
  2. XARELTO [Suspect]
     Active Substance: RIVAROXABAN
     Indication: ATRIAL FIBRILLATION
     Route: 048
     Dates: start: 20180131, end: 20190124
  3. ENALAPRIL RATIOPHARM [Concomitant]
     Active Substance: ENALAPRIL
     Route: 048
  4. TORASEMIDA CINFA [Concomitant]
     Route: 048
  5. SIMVASTATINA [Concomitant]
     Active Substance: SIMVASTATIN
     Route: 048

REACTIONS (1)
  - Iron deficiency anaemia [Unknown]

NARRATIVE: CASE EVENT DATE: 2018
